FAERS Safety Report 18038902 (Version 1)
Quarter: 2020Q3

REPORT INFORMATION
  Report Type: Spontaneous
  Country: NL (occurrence: NL)
  Receive Date: 20200718
  Receipt Date: 20200718
  Transmission Date: 20201103
  Serious: Yes (Death, Hospitalization)
  Sender: FDA-Public Use
  Company Number: NL-AUROBINDO-AUR-APL-2017-11898

PATIENT
  Age: 75 Year
  Sex: Female

DRUGS (1)
  1. METFORMIN [Suspect]
     Active Substance: METFORMIN HYDROCHLORIDE
     Indication: TYPE 2 DIABETES MELLITUS
     Dosage: 1500 MILLIGRAM, ONCE A DAY
     Route: 065

REACTIONS (8)
  - Myocardial infarction [Fatal]
  - Acute kidney injury [Fatal]
  - Death [Fatal]
  - Adverse drug reaction [Fatal]
  - Toxicity to various agents [Unknown]
  - Lactic acidosis [Fatal]
  - Metabolic acidosis [Unknown]
  - Hepatic failure [Fatal]
